FAERS Safety Report 9406092 (Version 1)
Quarter: 2013Q3

REPORT INFORMATION
  Report Type: Spontaneous
  Country: US (occurrence: US)
  Receive Date: 20130717
  Receipt Date: 20130717
  Transmission Date: 20140515
  Serious: No
  Sender: FDA-Public Use
  Company Number: US-009507513-2012SP005298

PATIENT
  Sex: Female

DRUGS (3)
  1. PEGINTRON [Suspect]
     Indication: HEPATITIS C
     Dates: start: 201111
  2. REBETOL [Suspect]
  3. VICTRELIS [Suspect]
     Indication: HEPATITIS C

REACTIONS (2)
  - Exposure during pregnancy [Unknown]
  - No adverse event [Unknown]
